FAERS Safety Report 7546551-2 (Version None)
Quarter: 2011Q2

REPORT INFORMATION
  Report Type: 
  Country: None (occurrence: None)
  Receive Date: 20110614
  Receipt Date: 20110607
  Transmission Date: 20111010
  Serious: Yes (Hospitalization)
  Sender: FDA-Public Use
  Company Number: US-GILEAD-2011-0035804

PATIENT
  Sex: Female
  Weight: 79.45 kg

DRUGS (3)
  1. SILDENAFIL CITRATE [Concomitant]
  2. LETAIRIS [Suspect]
     Indication: PULMONARY HYPERTENSION
     Route: 048
     Dates: start: 20080101
  3. ADCIRCA [Concomitant]

REACTIONS (7)
  - FALL [None]
  - HYPOKALAEMIA [None]
  - HYPOTENSION [None]
  - HAEMATOCHEZIA [None]
  - CONTUSION [None]
  - GASTRITIS [None]
  - CHEST PAIN [None]
